FAERS Safety Report 7707673-6 (Version None)
Quarter: 2011Q3

REPORT INFORMATION
  Report Type: 
  Country: None (occurrence: None)
  Receive Date: 20110824
  Receipt Date: 20110817
  Transmission Date: 20111222
  Serious: Yes (Other)
  Sender: FDA-Public Use
  Company Number: PHHY2011TW74266

PATIENT
  Age: 26 Year
  Sex: Male

DRUGS (3)
  1. ZOLPIDEM [Suspect]
     Indication: ADJUSTMENT DISORDER WITH ANXIETY
     Dosage: 10 MG, UNK
  2. ZOLPIDEM [Suspect]
     Dosage: 40 DF, UNK
  3. ZOLPIDEM [Suspect]
     Dosage: 200 TO 300 MG, UNK

REACTIONS (10)
  - INSOMNIA [None]
  - CONFUSIONAL STATE [None]
  - DRUG WITHDRAWAL SYNDROME [None]
  - SINUS TACHYCARDIA [None]
  - SUICIDE ATTEMPT [None]
  - BORDERLINE PERSONALITY DISORDER [None]
  - AGITATION [None]
  - CHEST DISCOMFORT [None]
  - DELIRIUM [None]
  - ANXIETY [None]
